FAERS Safety Report 9978235 (Version 1)
Quarter: 2014Q1

REPORT INFORMATION
  Report Type: Spontaneous
  Country: US (occurrence: US)
  Receive Date: 20140306
  Receipt Date: 20140306
  Transmission Date: 20141002
  Serious: Yes (Death)
  Sender: FDA-Public Use
  Company Number: US-BANPHARM-20142356

PATIENT
  Age: 26 Year
  Sex: Female

DRUGS (6)
  1. DIPHENHYDRAMINE UNKNOWN PRODUCT [Suspect]
     Route: 051
  2. HEROIN [Suspect]
  3. DIAZEPAM [Suspect]
  4. COCAINE [Suspect]
  5. CLONAZEPAM [Suspect]
  6. PROMETHAZINE [Concomitant]

REACTIONS (1)
  - Death [Fatal]
